FAERS Safety Report 6215722-X (Version None)
Quarter: 2009Q2

REPORT INFORMATION
  Report Type: 
  Country: None (occurrence: None)
  Receive Date: 20090603
  Receipt Date: 20090603
  Transmission Date: 20091009
  Serious: Yes (Other)
  Sender: FDA-Public Use
  Company Number: None

PATIENT
  Sex: Female
  Weight: 61.2356 kg

DRUGS (4)
  1. GABAPENTIN [Suspect]
     Indication: FACIAL NEURALGIA
     Dosage: 300 MG 1 CAPSULE DAY
     Dates: start: 20090406, end: 20090427
  2. GABAPENTIN [Suspect]
     Indication: PAIN
     Dosage: 300 MG 1 CAPSULE DAY
     Dates: start: 20090406, end: 20090427
  3. GABAPENTIN [Suspect]
     Indication: FACIAL NEURALGIA
     Dosage: 300 MG 1 CAPSULE DAY
     Dates: start: 20090331
  4. GABAPENTIN [Suspect]
     Indication: PAIN
     Dosage: 300 MG 1 CAPSULE DAY
     Dates: start: 20090331

REACTIONS (5)
  - COORDINATION ABNORMAL [None]
  - DIPLOPIA [None]
  - INCREASED APPETITE [None]
  - LETHARGY [None]
  - SLUGGISHNESS [None]
